FAERS Safety Report 10179734 (Version 1)
Quarter: 2014Q2

REPORT INFORMATION
  Report Type: Spontaneous
  Country: US (occurrence: None)
  Receive Date: 20140515
  Receipt Date: 20140515
  Transmission Date: 20141212
  Serious: Yes (Disabling)
  Sender: FDA-Public Use
  Company Number: FK201401744

PATIENT
  Age: 57 Year
  Sex: Female

DRUGS (17)
  1. PROPOFOL (MANUFACTURER UNKNOWN) (PROPOFOL) (PROPOFOL) [Suspect]
     Indication: INDUCTION OF ANAESTHESIA
  2. MIDAZOLAM (MANUFACTURER UNKNOWN) (MIDAZOLAM HYDROCHLORID) (MIDAZOLAM HYDROCHLORID)? [Suspect]
     Indication: INDUCTION OF ANAESTHESIA
  3. FENTANYL (FENTANYL) (FENTANYL) [Suspect]
     Indication: INDUCTION OF ANAESTHESIA
  4. SEVOFLURANE (SEVOFLURANE) (SEVOFLURANE) [Suspect]
     Indication: MAINTENANCE OF ANAESTHESIA
  5. ANALGESICS (ANALGESICS) (ANALGESICS) [Suspect]
     Indication: PROPHYLAXIS
     Route: 048
  6. MORPHINE (MORPHINE) [Concomitant]
  7. ROCURONIUM (ROCURONIUM) (ROCURONIUM) [Concomitant]
  8. DEXAMETHASONE (DEXAMETHASONE) (DEXAMETHASONE) [Concomitant]
  9. SCOPOLAMINE (HYOSCINE) (HYOSCINE) [Concomitant]
  10. ONDANSETRON (ONDANSETRON) (ONDANSETRON) [Concomitant]
  11. FLUOXETINE (FLUOXETINE) [Concomitant]
  12. SUMATRIPTAN (SUMATRIPTAN) [Concomitant]
  13. ASPIRIN (ACETYLSALICYLIC ACID) [Concomitant]
  14. CALCIUM (CALCIUM) [Concomitant]
  15. VITAMIN C (ASCORBIC ACID) [Concomitant]
  16. VITAMIN D (ERGOCALCIFEROL) [Concomitant]
  17. MULTIVITAMIN (VIGRAN) (ERGOCALCIFEOL, ASCORBIC ACID, PYRIDOXINE HYDROCHLORIDE, THIAMINE HYDROCHLORIDE, RETINOL, RIBOFLAVIN, NICOTINAMIDE, CALCIUM PANTHOTHENATE) [Concomitant]

REACTIONS (2)
  - Anosmia [None]
  - Ageusia [None]
